FAERS Safety Report 8317728-3 (Version None)
Quarter: 2012Q2

REPORT INFORMATION
  Report Type: 
  Country: None (occurrence: None)
  Receive Date: 20120427
  Receipt Date: 20120417
  Transmission Date: 20120825
  Serious: Yes (Hospitalization, Other)
  Sender: FDA-Public Use
  Company Number: US-ELI_LILLY_AND_COMPANY-US201107001064

PATIENT
  Sex: Female
  Weight: 78.458 kg

DRUGS (7)
  1. CALCIUM [Concomitant]
  2. FORTEO [Suspect]
     Dosage: 20 UG, QD
  3. IRON [Concomitant]
  4. EYE DROPS [Concomitant]
  5. FORTEO [Suspect]
     Indication: OSTEOPOROSIS
     Dosage: 20 UG, QD
     Route: 058
     Dates: start: 20110312
  6. VITAMIN D [Concomitant]
  7. FORTEO [Suspect]
     Dosage: 20 UG, QD

REACTIONS (8)
  - INCORRECT DOSE ADMINISTERED BY DEVICE [None]
  - JOINT DISLOCATION [None]
  - TIBIA FRACTURE [None]
  - DRUG DOSE OMISSION [None]
  - FALL [None]
  - FIBULA FRACTURE [None]
  - PNEUMONIA [None]
  - NASOPHARYNGITIS [None]
